FAERS Safety Report 11502766 (Version 1)
Quarter: 2015Q3

REPORT INFORMATION
  Report Type: Spontaneous
  Country: GB (occurrence: GB)
  Receive Date: 20150914
  Receipt Date: 20150914
  Transmission Date: 20151125
  Serious: Yes (Other)
  Sender: FDA-Public Use
  Company Number: GB-TEVA-429176ISR

PATIENT
  Age: 49 Year
  Sex: Male

DRUGS (2)
  1. BISOPROLOL FUMARATE. [Concomitant]
     Active Substance: BISOPROLOL FUMARATE
     Indication: ATRIAL FIBRILLATION
     Route: 048
     Dates: start: 200306
  2. ALFUZOSIN [Suspect]
     Active Substance: ALFUZOSIN
     Indication: URINE FLOW DECREASED
     Route: 048
     Dates: start: 200902, end: 201009

REACTIONS (3)
  - Infertility male [Not Recovered/Not Resolved]
  - Retrograde ejaculation [Not Recovered/Not Resolved]
  - Infertility [Not Recovered/Not Resolved]

NARRATIVE: CASE EVENT DATE: 200902
